FAERS Safety Report 19083237 (Version 1)
Quarter: 2021Q2

REPORT INFORMATION
  Report Type: Spontaneous
  Country: US (occurrence: US)
  Receive Date: 20210401
  Receipt Date: 20210401
  Transmission Date: 20210717
  Serious: Yes (Other)
  Sender: FDA-Public Use
  Company Number: None

PATIENT
  Age: 56 Year
  Sex: Male
  Weight: 112.05 kg

DRUGS (6)
  1. CENTRUM SILVER MULTIVITAMIN FOR MEN OVER 50 [Concomitant]
  2. ZYPREXA [Concomitant]
     Active Substance: OLANZAPINE
  3. SEROQUEL XR [Suspect]
     Active Substance: QUETIAPINE FUMARATE
     Indication: PSYCHOTIC DISORDER
     Dosage: ?          QUANTITY:2 TABLET(S);?
     Route: 048
  4. PROPRANOLOL [Concomitant]
     Active Substance: PROPRANOLOL HYDROCHLORIDE
  5. TESTOSTERONE. [Concomitant]
     Active Substance: TESTOSTERONE
  6. DAILY PROBIOTIC [Concomitant]

REACTIONS (1)
  - Weight increased [None]

NARRATIVE: CASE EVENT DATE: 20210401
